FAERS Safety Report 18226619 (Version 2)
Quarter: 2020Q3

REPORT INFORMATION
  Report Type: Report from Study
  Country: DE (occurrence: DE)
  Receive Date: 20200903
  Receipt Date: 20200911
  Transmission Date: 20201103
  Serious: Yes (Hospitalization)
  Sender: FDA-Public Use
  Company Number: DE-ROCHE-2662579

PATIENT
  Age: 69 Year
  Sex: Female
  Weight: 72 kg

DRUGS (18)
  1. FOSFOMYCIN [Concomitant]
     Active Substance: FOSFOMYCIN
     Dosage: 3000
     Dates: start: 20200324, end: 20200324
  2. LERCANIDIPINE [Concomitant]
     Active Substance: LERCANIDIPINE
  3. TORASEMID [Concomitant]
     Active Substance: TORSEMIDE
  4. EBRANTIL [Concomitant]
     Active Substance: URAPIDIL
  5. BLINDED ATEZOLIZUMAB [Suspect]
     Active Substance: ATEZOLIZUMAB
     Indication: OVARIAN CANCER
     Dosage: LAST DOSE PRIOR TO EVENT: 04/AUG/2020
     Route: 042
     Dates: start: 20200121
  6. CANDESARTAN. [Concomitant]
     Active Substance: CANDESARTAN
  7. TORASEMID [Concomitant]
     Active Substance: TORSEMIDE
  8. PEGYLATED LIPOSOMAL DOXORUBICIN [Suspect]
     Active Substance: DOXORUBICIN
     Indication: OVARIAN CANCER
     Dosage: LAST DOSE PRIOR TO EVENT: 04/AUG/2020
     Route: 042
     Dates: start: 20200121
  9. ELIQUIS [Concomitant]
     Active Substance: APIXABAN
  10. DEKRISTOL 20 000 [Concomitant]
     Dosage: 1  WOCHE
  11. VOLTAREN [Concomitant]
     Active Substance: DICLOFENAC SODIUM
     Dosage: CREAM BED TIME
  12. CANDESARTAN. [Concomitant]
     Active Substance: CANDESARTAN
     Dosage: HALF?0? HALF
     Dates: start: 20200804
  13. CLEXANE [Concomitant]
     Active Substance: ENOXAPARIN SODIUM
     Dosage: AN CHT TAGEN
  14. MAGNESIUM VERLA [Concomitant]
     Active Substance: MAGNESIUM
  15. BEVACIZUMAB. [Suspect]
     Active Substance: BEVACIZUMAB
     Indication: OVARIAN CANCER
     Dosage: LAST DOSE PRIOR TO EVENT: 04/AUG/2020
     Route: 042
     Dates: start: 20200204, end: 20200828
  16. TRIMETHOPRIM. [Concomitant]
     Active Substance: TRIMETHOPRIM
     Dates: start: 20200409, end: 20200418
  17. AMOXICLAV [Concomitant]
     Active Substance: AMOXICILLIN\CLAVULANATE POTASSIUM
     Dosage: 875/125 MG
     Dates: start: 20200414, end: 20200418
  18. METOPROLOL SUCCINATE. [Concomitant]
     Active Substance: METOPROLOL SUCCINATE

REACTIONS (4)
  - Tubulointerstitial nephritis [Not Recovered/Not Resolved]
  - Haematuria [Unknown]
  - Thrombotic microangiopathy [Unknown]
  - Acute kidney injury [Not Recovered/Not Resolved]

NARRATIVE: CASE EVENT DATE: 20200818
